FAERS Safety Report 23825863 (Version 1)
Quarter: 2024Q2

REPORT INFORMATION
  Report Type: Spontaneous
  Country: US (occurrence: US)
  Receive Date: 20240507
  Receipt Date: 20240507
  Transmission Date: 20240716
  Serious: Yes (Death, Hospitalization)
  Sender: FDA-Public Use
  Company Number: US-PFIZER INC-202400100788

PATIENT
  Age: 72 Year
  Sex: Female
  Weight: 45.351 kg

DRUGS (2)
  1. PAXLOVID [Suspect]
     Active Substance: NIRMATRELVIR\RITONAVIR
     Indication: COVID-19
     Dosage: UNK
  2. PAXLOVID [Suspect]
     Active Substance: NIRMATRELVIR\RITONAVIR
     Dosage: 2ND CYCLE

REACTIONS (5)
  - Drug ineffective [Fatal]
  - Sepsis [Fatal]
  - Haematemesis [Unknown]
  - Off label use [Unknown]
  - Product use issue [Unknown]
